FAERS Safety Report 11251014 (Version 3)
Quarter: 2015Q3

REPORT INFORMATION
  Report Type: Spontaneous
  Country: US (occurrence: US)
  Receive Date: 20150708
  Receipt Date: 20150803
  Transmission Date: 20151125
  Serious: Yes (Hospitalization, Other)
  Sender: FDA-Public Use
  Company Number: US-ELI_LILLY_AND_COMPANY-US201106002876

PATIENT
  Age: 43 Year
  Sex: Male

DRUGS (4)
  1. ZYPREXA [Suspect]
     Active Substance: OLANZAPINE
     Indication: DEPRESSION
     Dosage: UNK, UNKNOWN
     Route: 065
  2. PROZAC [Suspect]
     Active Substance: FLUOXETINE HYDROCHLORIDE
     Indication: DEPRESSION
     Dosage: 20 MG, UNKNOWN
     Route: 065
     Dates: start: 200907
  3. PROZAC [Suspect]
     Active Substance: FLUOXETINE HYDROCHLORIDE
     Dosage: 40 MG, UNKNOWN
     Route: 065
  4. SYMBYAX [Suspect]
     Active Substance: FLUOXETINE HYDROCHLORIDE\OLANZAPINE
     Indication: DEPRESSION
     Dosage: UNK UNK, UNKNOWN
     Route: 065
     Dates: start: 2010

REACTIONS (3)
  - Drug ineffective [Unknown]
  - Seizure [Unknown]
  - Off label use [Unknown]
